FAERS Safety Report 4748235-2 (Version None)
Quarter: 2005Q3

REPORT INFORMATION
  Report Type: 
  Country: None (occurrence: None)
  Receive Date: 20050818
  Receipt Date: 20001017
  Transmission Date: 20060218
  Serious: Yes (Hospitalization, Disabling, Other)
  Sender: FDA-Public Use
  Company Number: PHEH2000US09609

PATIENT
  Age: 56 Year
  Sex: Female
  Weight: 66 kg

DRUGS (5)
  1. PREMARIN [Concomitant]
  2. ACIPHEX [Concomitant]
  3. RELAFEN [Concomitant]
  4. VIOXX [Concomitant]
  5. LAMISIL [Suspect]
     Indication: NAIL TINEA
     Dosage: 250 MG, QD
     Route: 048
     Dates: start: 20000828, end: 20001002

REACTIONS (23)
  - AGEUSIA [None]
  - ANOREXIA [None]
  - ASTHENIA [None]
  - COLON POLYPECTOMY [None]
  - COLONIC POLYP [None]
  - DEHYDRATION [None]
  - DIARRHOEA [None]
  - DYSGEUSIA [None]
  - DYSPHAGIA [None]
  - DYSPNOEA [None]
  - FATIGUE [None]
  - INFLUENZA [None]
  - INSOMNIA [None]
  - MALNUTRITION [None]
  - NAUSEA [None]
  - PAIN [None]
  - PHARYNGOLARYNGEAL PAIN [None]
  - RESPIRATORY ARREST [None]
  - RETCHING [None]
  - TONGUE BLACK HAIRY [None]
  - VERTIGO [None]
  - VOMITING [None]
  - WEIGHT DECREASED [None]
